FAERS Safety Report 6690031-3 (Version None)
Quarter: 2010Q2

REPORT INFORMATION
  Report Type: 
  Country: None (occurrence: None)
  Receive Date: 20100421
  Receipt Date: 20100412
  Transmission Date: 20101027
  Serious: Yes (Other)
  Sender: FDA-Public Use
  Company Number: PHHY2009US56832

PATIENT
  Sex: Female
  Weight: 44.898 kg

DRUGS (11)
  1. RECLAST [Suspect]
     Indication: OSTEOPOROSIS
     Dosage: 5 MG, UNK
     Route: 042
     Dates: start: 20091209, end: 20091209
  2. COUMADIN [Suspect]
  3. COZAAR [Concomitant]
  4. METOPROLOL TARTRATE [Concomitant]
  5. ECOTRIN [Concomitant]
  6. ANTIBIOTICS [Concomitant]
  7. CENTRUM [Concomitant]
  8. CITRACAL [Concomitant]
     Dosage: 4 TIMES A DAY
  9. VITAMIN D [Concomitant]
  10. MULTI-VITAMINS [Concomitant]
  11. EPIDRIN 81 [Concomitant]

REACTIONS (14)
  - ABASIA [None]
  - ARTHRALGIA [None]
  - BACK PAIN [None]
  - BLOOD DISORDER [None]
  - BONE PAIN [None]
  - DECREASED APPETITE [None]
  - DRUG INTERACTION [None]
  - DYSSTASIA [None]
  - HEADACHE [None]
  - MUSCLE SPASMS [None]
  - MYALGIA [None]
  - NAUSEA [None]
  - NECK PAIN [None]
  - PAIN IN EXTREMITY [None]
